FAERS Safety Report 7899167-2 (Version None)
Quarter: 2011Q4

REPORT INFORMATION
  Report Type: 
  Country: None (occurrence: None)
  Receive Date: 20111107
  Receipt Date: 20110912
  Transmission Date: 20120403
  Serious: No
  Sender: FDA-Public Use
  Company Number: US-AMGEN-USASP2011046656

PATIENT
  Sex: Male

DRUGS (1)
  1. ENBREL [Suspect]
     Indication: RHEUMATOID ARTHRITIS
     Dosage: 50 MG, QWK
     Dates: start: 20110401, end: 20110902

REACTIONS (6)
  - PALPITATIONS [None]
  - MUSCLE SPASMS [None]
  - GINGIVAL BLEEDING [None]
  - HYPERHIDROSIS [None]
  - ARTHRALGIA [None]
  - VISION BLURRED [None]
